FAERS Safety Report 16289011 (Version 2)
Quarter: 2020Q4

REPORT INFORMATION
  Report Type: Spontaneous
  Country: US (occurrence: US)
  Receive Date: 20190509
  Receipt Date: 20201028
  Transmission Date: 20210113
  Serious: Yes (Hospitalization, Other)
  Sender: FDA-Public Use
  Company Number: US-ASTRAZENECA-2019SE62088

PATIENT
  Age: 13408 Day
  Sex: Male
  Weight: 89.8 kg

DRUGS (15)
  1. NEXIUM 24HR [Suspect]
     Active Substance: ESOMEPRAZOLE MAGNESIUM
     Route: 048
  2. ZOLPIDEM [Concomitant]
     Active Substance: ZOLPIDEM TARTRATE
     Indication: SLEEP DISORDER
     Dates: start: 2019
  3. RENVELA [Concomitant]
     Active Substance: SEVELAMER CARBONATE
     Indication: HYPOVITAMINOSIS
     Dates: start: 2014
  4. ONDANSETRON [Concomitant]
     Active Substance: ONDANSETRON
     Indication: NAUSEA
     Dates: start: 2014
  5. HUMULIN NOS [Concomitant]
     Active Substance: INSULIN HUMAN
  6. CALCITRIOL. [Concomitant]
     Active Substance: CALCITRIOL
     Indication: HYPOVITAMINOSIS
     Dates: start: 2014
  7. EPOGEN [Concomitant]
     Active Substance: ERYTHROPOIETIN
  8. PRILOSEC OTC [Suspect]
     Active Substance: OMEPRAZOLE MAGNESIUM
     Indication: GASTROOESOPHAGEAL REFLUX DISEASE
     Route: 048
     Dates: start: 2010, end: 2014
  9. CLONIDINE. [Concomitant]
     Active Substance: CLONIDINE
     Indication: BLOOD PRESSURE ABNORMAL
     Dates: start: 2009
  10. VENOFER [Concomitant]
     Active Substance: IRON SUCROSE
  11. CARVEDILOL. [Concomitant]
     Active Substance: CARVEDILOL
     Indication: BLOOD PRESSURE ABNORMAL
     Dates: start: 2009
  12. FOLIC ACID. [Concomitant]
     Active Substance: FOLIC ACID
  13. VALSARTAN. [Concomitant]
     Active Substance: VALSARTAN
  14. FAMOTIDINE. [Concomitant]
     Active Substance: FAMOTIDINE
     Dates: start: 2015
  15. ROPINIROLE. [Concomitant]
     Active Substance: ROPINIROLE

REACTIONS (8)
  - Chronic kidney disease [Not Recovered/Not Resolved]
  - Hyperparathyroidism secondary [Unknown]
  - Renal tubular necrosis [Unknown]
  - Nephrogenic anaemia [Unknown]
  - End stage renal disease [Unknown]
  - Chronic kidney disease-mineral and bone disorder [Unknown]
  - Acute kidney injury [Unknown]
  - Renal failure [Unknown]

NARRATIVE: CASE EVENT DATE: 20110526
